FAERS Safety Report 24309056 (Version 5)
Quarter: 2024Q4

REPORT INFORMATION
  Report Type: Spontaneous
  Country: US (occurrence: US)
  Receive Date: 20240911
  Receipt Date: 20241210
  Transmission Date: 20250115
  Serious: Yes (Other)
  Sender: PFIZER
  Company Number: US-PFIZER INC-202400253774

PATIENT
  Age: 78 Year
  Sex: Male
  Weight: 81.633 kg

DRUGS (1)
  1. PAXLOVID [Suspect]
     Active Substance: NIRMATRELVIR\RITONAVIR
     Indication: COVID-19 treatment
     Dosage: 300 MG, 2X/DAY
     Route: 048
     Dates: start: 20240904, end: 20240907

REACTIONS (13)
  - Abdominal pain upper [Recovering/Resolving]
  - Gastrointestinal pain [Recovering/Resolving]
  - Dyspnoea [Recovered/Resolved]
  - Chills [Recovered/Resolved]
  - Confusional state [Recovered/Resolved]
  - Stomatitis [Not Recovered/Not Resolved]
  - Chapped lips [Not Recovered/Not Resolved]
  - Lip blister [Not Recovered/Not Resolved]
  - Drug hypersensitivity [Not Recovered/Not Resolved]
  - Feeling abnormal [Recovered/Resolved]
  - Dysgeusia [Recovering/Resolving]
  - Pain [Recovering/Resolving]
  - Gastritis [Unknown]

NARRATIVE: CASE EVENT DATE: 20240904
